FAERS Safety Report 20957331 (Version 2)
Quarter: 2022Q2

REPORT INFORMATION
  Report Type: Report from Study
  Country: CN (occurrence: CN)
  Receive Date: 20220614
  Receipt Date: 20220621
  Transmission Date: 20220721
  Serious: Yes (Hospitalization)
  Sender: FDA-Public Use
  Company Number: CN-PFIZER INC-202200819505

PATIENT
  Age: 54 Year
  Sex: Female
  Weight: 49 kg

DRUGS (4)
  1. PACLITAXEL [Suspect]
     Active Substance: PACLITAXEL
     Indication: Triple negative breast cancer
     Dosage: 124.8 MG, 1 IN 1 WK
     Route: 042
     Dates: start: 20200910, end: 20201208
  2. EPIRUBICIN HYDROCHLORIDE [Suspect]
     Active Substance: EPIRUBICIN HYDROCHLORIDE
     Indication: Triple negative breast cancer
     Dosage: 135.9 MG, 1 IN 2 WK
     Route: 042
     Dates: start: 20201215, end: 20210126
  3. ATEZOLIZUMAB [Suspect]
     Active Substance: ATEZOLIZUMAB
     Indication: Triple negative breast cancer
     Dosage: 1200 MG, 1 IN 3 WK
     Route: 041
     Dates: start: 20200910, end: 20210518
  4. CYCLOPHOSPHAMIDE [Suspect]
     Active Substance: CYCLOPHOSPHAMIDE
     Indication: Triple negative breast cancer
     Dosage: 906 MG, 1 IN 2 WK
     Route: 042
     Dates: start: 20201215, end: 20210126

REACTIONS (1)
  - Pneumonitis [Not Recovered/Not Resolved]

NARRATIVE: CASE EVENT DATE: 20210607
